FAERS Safety Report 25971075 (Version 1)
Quarter: 2025Q4

REPORT INFORMATION
  Report Type: Spontaneous
  Country: CN (occurrence: CN)
  Receive Date: 20251028
  Receipt Date: 20251028
  Transmission Date: 20260118
  Serious: Yes (Hospitalization, Other)
  Sender: AMNEAL
  Company Number: CN-AMNEAL PHARMACEUTICALS-2025-AMRX-04069

PATIENT
  Age: 39 Year
  Sex: Female

DRUGS (8)
  1. SILDENAFIL [Suspect]
     Active Substance: SILDENAFIL
     Indication: Pulmonary hypertension
     Dosage: 25 MILLIGRAM, 3 /DAY
     Route: 065
  2. SILDENAFIL [Suspect]
     Active Substance: SILDENAFIL
     Indication: Skin ulcer
  3. AMBRISENTAN [Suspect]
     Active Substance: AMBRISENTAN
     Indication: Pulmonary hypertension
     Dosage: UNK
     Route: 065
  4. AMBRISENTAN [Suspect]
     Active Substance: AMBRISENTAN
     Indication: Skin ulcer
  5. PREDNISONE [Concomitant]
     Active Substance: PREDNISONE
     Indication: Pulmonary arterial pressure
     Dosage: 10 MILLIGRAM, DAILY
     Route: 065
  6. PREDNISONE [Concomitant]
     Active Substance: PREDNISONE
     Indication: Systemic scleroderma
     Dosage: 30 MILLIGRAM, DAILY
     Route: 065
  7. CYCLOSPORINE [Concomitant]
     Active Substance: CYCLOSPORINE
     Indication: Pulmonary arterial pressure
     Dosage: 100 MG IN THE MORNING AND 50 MG IN THE EVENING
     Route: 065
  8. MYCOPHENOLATE MOFETIL [Concomitant]
     Active Substance: MYCOPHENOLATE MOFETIL
     Indication: Product used for unknown indication
     Dosage: 0.5 GRAM, 2 /DAY
     Route: 065

REACTIONS (1)
  - Meigs^ syndrome [Recovering/Resolving]
